FAERS Safety Report 17373801 (Version 2)
Quarter: 2020Q1

REPORT INFORMATION
  Report Type: Report from Study
  Country: US (occurrence: US)
  Receive Date: 20200205
  Receipt Date: 20200213
  Transmission Date: 20200409
  Serious: Yes (Death)
  Sender: FDA-Public Use
  Company Number: US-PFIZER INC-2020046630

PATIENT
  Age: 81 Year
  Sex: Male
  Weight: 73.3 kg

DRUGS (2)
  1. SUNITINIB MALATE. [Suspect]
     Active Substance: SUNITINIB MALATE
     Dosage: 50MG QD ON DAYS 1-28
     Route: 048
     Dates: start: 20191014, end: 20191105
  2. SUNITINIB MALATE. [Suspect]
     Active Substance: SUNITINIB MALATE
     Dosage: 37.5MG QD ON DAYS 1-28
     Route: 048
     Dates: start: 20191126, end: 20191203

REACTIONS (1)
  - Death [Fatal]

NARRATIVE: CASE EVENT DATE: 20191229
